FAERS Safety Report 23250278 (Version 1)
Quarter: 2023Q4

REPORT INFORMATION
  Report Type: Spontaneous
  Country: BR (occurrence: BR)
  Receive Date: 20231201
  Receipt Date: 20231201
  Transmission Date: 20240110
  Serious: Yes (Hospitalization, Other)
  Sender: FDA-Public Use
  Company Number: BR-BoehringerIngelheim-2023-BI-275846

PATIENT
  Sex: Female

DRUGS (2)
  1. CLONIDINE HYDROCHLORIDE [Suspect]
     Active Substance: CLONIDINE HYDROCHLORIDE
     Indication: Hypertension
     Route: 048
     Dates: start: 1983, end: 20231121
  2. LOSARTAN [Concomitant]
     Active Substance: LOSARTAN
     Indication: Hypertension
     Dosage: 3  TABLETS
     Route: 048
     Dates: start: 2020

REACTIONS (3)
  - Cystitis [Recovered/Resolved]
  - Kidney infection [Recovered/Resolved]
  - Dry mouth [Recovered/Resolved]
